FAERS Safety Report 9194181 (Version 2)
Quarter: 2013Q2

REPORT INFORMATION
  Report Type: Report from Study
  Country: JP (occurrence: JP)
  Receive Date: 20130327
  Receipt Date: 20130416
  Transmission Date: 20140414
  Serious: Yes (Other)
  Sender: FDA-Public Use
  Company Number: PHHY2013JP029471

PATIENT
  Age: 76 Year
  Sex: Female
  Weight: 46 kg

DRUGS (11)
  1. EXELON [Suspect]
     Indication: DEMENTIA ALZHEIMER^S TYPE
     Dosage: 4.5 MG, DAILY
     Route: 062
     Dates: start: 20121030, end: 20121126
  2. EXELON [Suspect]
     Dosage: 9 MG, DAILY
     Route: 062
     Dates: start: 20121127, end: 20121224
  3. EXELON [Suspect]
     Dosage: 13.5 MG, DAILY
     Route: 062
     Dates: start: 20121225, end: 20130121
  4. EXELON [Suspect]
     Dosage: 18 MG, DAILY
     Route: 062
     Dates: start: 20130122, end: 20130226
  5. ARICEPT [Concomitant]
     Indication: DEMENTIA ALZHEIMER^S TYPE
     Dosage: 5 MG, UNK
     Route: 048
     Dates: start: 20121029
  6. ARICEPT [Concomitant]
     Dosage: 5 MG, DAILY
  7. LIMAS [Concomitant]
     Indication: BIPOLAR DISORDER
     Dosage: 200 MG, DAILY
     Route: 048
  8. LIMAS [Concomitant]
     Dosage: 400 MG, DAILY
     Route: 048
     Dates: start: 20121127
  9. LIMAS [Concomitant]
     Dosage: 200 MG, DAILY
     Route: 048
     Dates: start: 20130205
  10. GRAMALIL [Concomitant]
     Dosage: 100 MG, UNK
     Route: 048
  11. GRAMALIL [Concomitant]
     Dosage: 50 MG, UNK
     Route: 048

REACTIONS (2)
  - Bipolar disorder [Recovering/Resolving]
  - Weight decreased [Unknown]
